FAERS Safety Report 8470464-5 (Version None)
Quarter: 2012Q2

REPORT INFORMATION
  Report Type: 
  Country: None (occurrence: None)
  Receive Date: 20120627
  Receipt Date: 20120512
  Transmission Date: 20120825
  Serious: Yes (Other)
  Sender: FDA-Public Use
  Company Number: FR-PFIZER INC-2012151695

PATIENT
  Age: 24 Year
  Sex: Male

DRUGS (2)
  1. VFEND [Suspect]
     Indication: PNEUMOCYSTIS JIROVECI PNEUMONIA
     Dosage: UNK
  2. RITUXIMAB [Concomitant]

REACTIONS (2)
  - SQUAMOUS CELL CARCINOMA [None]
  - BOWEN'S DISEASE [None]
